FAERS Safety Report 7713328-4 (Version None)
Quarter: 2011Q3

REPORT INFORMATION
  Report Type: 
  Country: None (occurrence: None)
  Receive Date: 20110826
  Receipt Date: 20110817
  Transmission Date: 20111222
  Serious: Yes (Other)
  Sender: FDA-Public Use
  Company Number: PHFR2011GB04907

PATIENT
  Age: 39 Year
  Sex: Female

DRUGS (4)
  1. FERROUS SULFATE TAB [Concomitant]
     Indication: BLOOD IRON DECREASED
     Dosage: 200 MG/DAY
     Route: 048
     Dates: start: 20110622
  2. VITAMIN B6 [Concomitant]
     Indication: PREMENSTRUAL SYNDROME
     Dosage: 10 MG/DAY
     Route: 048
  3. TERBINAFINE HCL [Suspect]
     Indication: TINEA CRURIS
     Dosage: 250 MG, QD
     Route: 048
     Dates: start: 20110509, end: 20110622
  4. COD-LIVER OIL [Concomitant]
     Indication: PREMENSTRUAL SYNDROME
     Route: 048

REACTIONS (1)
  - AGEUSIA [None]
